FAERS Safety Report 6859336-7 (Version None)
Quarter: 2010Q3

REPORT INFORMATION
  Report Type: 
  Country: None (occurrence: None)
  Receive Date: 20100719
  Receipt Date: 20080319
  Transmission Date: 20110219
  Serious: No
  Sender: FDA-Public Use
  Company Number: US-PFIZER INC-2008017656

PATIENT
  Sex: Male
  Weight: 91.6 kg

DRUGS (3)
  1. CHANTIX [Suspect]
     Indication: SMOKING CESSATION THERAPY
     Dates: start: 20080101, end: 20080210
  2. NIFEDIPINE [Concomitant]
  3. MOTRIN [Concomitant]

REACTIONS (4)
  - AGITATION [None]
  - ANXIETY [None]
  - IRRITABILITY [None]
  - PERSONALITY CHANGE [None]
